FAERS Safety Report 20767234 (Version 1)
Quarter: 2022Q2

REPORT INFORMATION
  Report Type: Spontaneous
  Country: US (occurrence: US)
  Receive Date: 20220429
  Receipt Date: 20220429
  Transmission Date: 20220721
  Serious: Yes (Other)
  Sender: FDA-Public Use
  Company Number: US-BRISTOL-MYERS SQUIBB COMPANY-2022-023960

PATIENT
  Age: 76 Year
  Sex: Female

DRUGS (7)
  1. REVLIMID [Suspect]
     Active Substance: LENALIDOMIDE
     Indication: Plasma cell myeloma
     Dosage: DOSE : 10MG;     FREQ : 14 DAYS ON 7 DAYS OFF
     Route: 048
  2. DEXAMETHASONE [Concomitant]
     Active Substance: DEXAMETHASONE
  3. CARVEDILOL [Concomitant]
     Active Substance: CARVEDILOL
  4. NIFEDIPINE [Concomitant]
     Active Substance: NIFEDIPINE
  5. XARELTO [Concomitant]
     Active Substance: RIVAROXABAN
  6. sodium bicar [Concomitant]
  7. DOCUSATE [Concomitant]
     Active Substance: DOCUSATE

REACTIONS (2)
  - Neutropenia [Unknown]
  - Off label use [Unknown]
